FAERS Safety Report 24122910 (Version 1)
Quarter: 2024Q3

REPORT INFORMATION
  Report Type: Spontaneous
  Country: FR (occurrence: FR)
  Receive Date: 20240723
  Receipt Date: 20240723
  Transmission Date: 20241016
  Serious: No
  Sender: ALKEM
  Company Number: FR-ALKEM LABORATORIES LIMITED-FR-ALKEM-2023-10183

PATIENT
  Sex: Male

DRUGS (10)
  1. DRONABINOL [Suspect]
     Active Substance: DRONABINOL
     Indication: Neuralgia
     Dosage: 2.5 MILLIGRAM, TID (SOFT CAPSULE)
     Route: 065
  2. DRONABINOL [Suspect]
     Active Substance: DRONABINOL
     Dosage: 2.5 MILLIGRAM, BID (SOFT CAPSULE)
     Route: 065
  3. DRONABINOL [Suspect]
     Active Substance: DRONABINOL
     Dosage: 2.5 MILLIGRAM, TID (SOFT CAPSULE)
     Route: 065
  4. ATORVASTATIN [Concomitant]
     Active Substance: ATORVASTATIN
     Indication: Product used for unknown indication
     Dosage: 1 DOSAGE FORM, QD
     Route: 065
  5. BACLOFEN [Concomitant]
     Active Substance: BACLOFEN
     Indication: Product used for unknown indication
     Dosage: 6 DOSAGE FORM (6 DAILY)
     Route: 065
  6. TROSPIUM CHLORIDE [Concomitant]
     Active Substance: TROSPIUM CHLORIDE
     Indication: Product used for unknown indication
     Dosage: 2 DOSAGE FORM (2 DAILY)
     Route: 065
  7. Gutron 2.5 [Concomitant]
     Indication: Product used for unknown indication
     Dosage: 7 DOSAGE FORM (7 DAILY) (2.5)
     Route: 065
  8. LEVETIRACETAM [Concomitant]
     Active Substance: LEVETIRACETAM
     Indication: Product used for unknown indication
     Dosage: 2 DOSAGE FORM (2 DAILY)
     Route: 065
  9. Seresta 10 [Concomitant]
     Indication: Product used for unknown indication
     Dosage: 2 DOSAGE FORM (2 DAILY)
     Route: 065
  10. SOLIFENACIN [Concomitant]
     Active Substance: SOLIFENACIN
     Indication: Product used for unknown indication
     Dosage: 1 DOSAGE FORM (1 DAILY)
     Route: 065

REACTIONS (3)
  - Somnolence [Unknown]
  - Off label use [Unknown]
  - Product prescribing issue [Unknown]
